FAERS Safety Report 5416746-2 (Version None)
Quarter: 2007Q3

REPORT INFORMATION
  Report Type: 
  Country: None (occurrence: None)
  Receive Date: 20070816
  Receipt Date: 20070814
  Transmission Date: 20080115
  Serious: Yes (Hospitalization)
  Sender: FDA-Public Use
  Company Number: D0054283A

PATIENT
  Age: 57 Year
  Sex: Female
  Weight: 75 kg

DRUGS (2)
  1. QUILONUM RETARD [Suspect]
     Dosage: 450MG SEE DOSAGE TEXT
     Route: 048
     Dates: start: 20070813, end: 20070813
  2. JATROSOM [Suspect]
     Dosage: 10MG SEE DOSAGE TEXT
     Route: 048
     Dates: start: 20070813, end: 20070813

REACTIONS (4)
  - INTENTIONAL OVERDOSE [None]
  - NYSTAGMUS [None]
  - SUICIDE ATTEMPT [None]
  - TREMOR [None]
